FAERS Safety Report 6724404-7 (Version None)
Quarter: 2010Q2

REPORT INFORMATION
  Report Type: 
  Country: None (occurrence: None)
  Receive Date: 20100513
  Receipt Date: 20100505
  Transmission Date: 20101027
  Serious: Yes (Other)
  Sender: FDA-Public Use
  Company Number: CA-PFIZER INC-2010056740

PATIENT
  Age: 56 Year
  Sex: Male

DRUGS (3)
  1. NORVASC [Suspect]
     Dosage: 10 MG, UNK
     Dates: start: 19990101
  2. NORVASC [Suspect]
     Dosage: 15 MG, UNK
     Dates: start: 20090801, end: 20090801
  3. NORVASC [Suspect]
     Dosage: 5 MG, UNK
     Dates: start: 20090101

REACTIONS (3)
  - DEAFNESS [None]
  - OTOTOXICITY [None]
  - TINNITUS [None]
